FAERS Safety Report 4322283-9 (Version None)
Quarter: 2004Q1

REPORT INFORMATION
  Report Type: 
  Country: None (occurrence: None)
  Receive Date: 20040319
  Receipt Date: 20040312
  Transmission Date: 20041129
  Serious: Yes (Hospitalization)
  Sender: FDA-Public Use
  Company Number: 2004203688US

PATIENT
  Age: 42 Year
  Sex: Female

DRUGS (1)
  1. PROVERA [Suspect]
     Indication: HORMONE REPLACEMENT THERAPY
     Dosage: ORAL
     Route: 048

REACTIONS (5)
  - CHEST PAIN [None]
  - PARANOIA [None]
  - PULMONARY EMBOLISM [None]
  - PULMONARY FUNCTION TEST DECREASED [None]
  - PULMONARY THROMBOSIS [None]
